FAERS Safety Report 7367366-4 (Version None)
Quarter: 2011Q1

REPORT INFORMATION
  Report Type: 
  Country: None (occurrence: None)
  Receive Date: 20110322
  Receipt Date: 20110318
  Transmission Date: 20110831
  Serious: Yes (Hospitalization, Other)
  Sender: FDA-Public Use
  Company Number: US-ABBOTT-11P-163-0712957-00

PATIENT
  Sex: Female
  Weight: 100.79 kg

DRUGS (9)
  1. DIOVAN HCT [Concomitant]
     Indication: BLOOD PRESSURE INCREASED
     Dosage: 320/25
     Route: 048
  2. HUMIRA [Suspect]
     Route: 058
     Dates: start: 20100101, end: 20110101
  3. AMLODIPINE [Concomitant]
     Indication: BLOOD PRESSURE INCREASED
     Route: 048
  4. HUMIRA [Suspect]
     Indication: RHEUMATOID ARTHRITIS
     Route: 058
     Dates: start: 20100101, end: 20100901
  5. CRANBERRY [Concomitant]
     Indication: MEDICAL DIET
     Route: 048
  6. FISH OIL [Concomitant]
     Indication: MEDICAL DIET
     Route: 048
  7. GARLIC [Concomitant]
     Indication: MEDICAL DIET
     Route: 048
  8. METHOTREXATE [Concomitant]
     Indication: RHEUMATOID ARTHRITIS
     Route: 048
  9. HUMIRA [Suspect]
     Route: 058
     Dates: start: 20110101

REACTIONS (4)
  - MUSCULOSKELETAL STIFFNESS [None]
  - NASOPHARYNGITIS [None]
  - ARTHRALGIA [None]
  - GOITRE [None]
